FAERS Safety Report 14616309 (Version 2)
Quarter: 2018Q2

REPORT INFORMATION
  Report Type: Spontaneous
  Country: US (occurrence: US)
  Receive Date: 20180309
  Receipt Date: 20180501
  Transmission Date: 20180711
  Serious: No
  Sender: FDA-Public Use
  Company Number: US-PFIZER INC-2018094974

PATIENT
  Age: 87 Year
  Sex: Female
  Weight: 63 kg

DRUGS (1)
  1. IBRANCE [Suspect]
     Active Substance: PALBOCICLIB
     Indication: BREAST CANCER FEMALE
     Dosage: 125 MG, CYCLIC (ONCE A DAY, FOR 21 DAYS AND THEN OFF THE 4TH WEEK)
     Route: 048
     Dates: end: 20180425

REACTIONS (2)
  - Alopecia [Unknown]
  - Neoplasm progression [Unknown]

NARRATIVE: CASE EVENT DATE: 20180424
